FAERS Safety Report 7902899-0 (Version None)
Quarter: 2011Q4

REPORT INFORMATION
  Report Type: 
  Country: None (occurrence: None)
  Receive Date: 20111107
  Receipt Date: 20111021
  Transmission Date: 20120403
  Serious: Yes (Hospitalization)
  Sender: FDA-Public Use
  Company Number: 2011MA015910

PATIENT
  Age: 25 Year
  Sex: Female

DRUGS (4)
  1. PROMAZINE HYDROCHLORIDE [Concomitant]
  2. ZOLPIDEM TARTRATE [Suspect]
     Dosage: 10 MG;HS;
  3. FLUPHENAZINE [Concomitant]
  4. OLANZAPINE [Suspect]
     Dosage: 10 MG;QD;

REACTIONS (7)
  - EXTRAPYRAMIDAL DISORDER [None]
  - WEIGHT DECREASED [None]
  - FATIGUE [None]
  - DEHYDRATION [None]
  - DELUSION [None]
  - DIET REFUSAL [None]
  - WEIGHT INCREASED [None]
